FAERS Safety Report 6285260 (Version 18)
Quarter: 2013Q4

REPORT INFORMATION
  Report Type: Spontaneous
  Country: US (occurrence: US)
  Receive Date: 20070411
  Receipt Date: 20131028
  Transmission Date: 20140711
  Serious: Yes (Hospitalization, Other)
  Sender: FDA-Public Use
  Company Number: PHEH2007US03697

PATIENT
  Age: 49 Year
  Sex: Female

DRUGS (85)
  1. ZOMETA [Suspect]
     Indication: BREAST CANCER
     Route: 042
     Dates: start: 2005
  2. AREDIA [Suspect]
     Indication: BREAST CANCER
     Route: 042
     Dates: start: 2005
  3. ZELNORM [Concomitant]
  4. HERCEPTIN [Concomitant]
  5. CHEMOTHERAPEUTICS NOS [Concomitant]
  6. XOPENEX [Concomitant]
  7. SPIRIVA ^BOEHRINGER INGELHEIM^ [Concomitant]
  8. K-DUR [Concomitant]
  9. ATROVENT [Concomitant]
  10. LASIX [Concomitant]
  11. WELLBUTRIN [Concomitant]
  12. LABETALOL [Concomitant]
  13. NEURONTIN [Concomitant]
  14. THEOPHYLLINE [Concomitant]
  15. ALBUTEROL [Concomitant]
  16. PENICILLIN NOS [Concomitant]
  17. OXYCONTIN [Concomitant]
     Dosage: 40 MG, BID
  18. ROXICODONE [Concomitant]
  19. BACLOFEN [Concomitant]
  20. PREDNISONE [Concomitant]
  21. OMNICEF [Concomitant]
  22. CIPRO ^MILES^ [Concomitant]
  23. ZYRTEC [Concomitant]
  24. EFFEXOR [Concomitant]
  25. ATIVAN [Concomitant]
  26. KETEK [Concomitant]
  27. NORMODYNE [Concomitant]
  28. MIRALAX [Concomitant]
  29. TORADOL [Concomitant]
     Dosage: 60 MG, ONCE/SINGLE
     Route: 030
  30. BEXTRA [Concomitant]
  31. FLEXERIL [Concomitant]
  32. DYAZIDE [Concomitant]
  33. DEXAMETHASONE [Concomitant]
  34. PREVACID [Concomitant]
  35. CHLORPHEDRINE SR [Concomitant]
  36. REGLAN [Concomitant]
  37. LEVAQUIN [Concomitant]
     Dosage: 500 MG, UNK
  38. SKELAXIN [Concomitant]
  39. IBUPROFEN [Concomitant]
  40. PROTON PUMP INHIBITORS [Concomitant]
  41. VERSAPEN [Concomitant]
  42. ACETAMINOPHEN [Concomitant]
  43. HYDROCODONE [Concomitant]
  44. TIOTROPIUM BROMIDE [Concomitant]
  45. POTASSIUM CHLORIDE [Concomitant]
  46. LORTAB [Concomitant]
  47. DURAGESIC [Concomitant]
  48. DILAUDID [Concomitant]
  49. PERCOCET [Concomitant]
  50. GEMZAR [Concomitant]
  51. METHOTREXATE [Concomitant]
  52. TAXOL [Concomitant]
  53. METHADONE [Concomitant]
  54. TAXOTERE [Concomitant]
  55. FEMARA [Concomitant]
  56. BACTRIM [Concomitant]
  57. ADRIAMYCIN [Concomitant]
  58. CYTOXAN [Concomitant]
  59. MONOPRIL [Concomitant]
     Indication: HYPERTENSION
  60. DIFLUCAN [Concomitant]
     Dosage: 200 MG, QD
     Route: 048
  61. CLINDAMYCIN [Concomitant]
  62. VALIUM [Concomitant]
     Dosage: 5 MG, PRN
     Route: 048
  63. AMITIZA [Concomitant]
     Dosage: 24 MEQ, QD
     Route: 048
  64. ICAR [Concomitant]
     Route: 048
  65. CELEXA [Concomitant]
     Indication: CHRONIC OBSTRUCTIVE PULMONARY DISEASE
     Route: 048
  66. NEXIUM [Concomitant]
     Dosage: 40 MG, QD
     Route: 048
  67. COMPAZINE [Concomitant]
  68. NORCO [Concomitant]
     Indication: PAIN
     Route: 048
  69. XANAX [Concomitant]
     Route: 048
  70. COZAAR [Concomitant]
  71. ZITHROMAX ^PFIZER^ [Concomitant]
  72. ROBITUSSIN ^ROBINS^ [Concomitant]
  73. OXYGEN THERAPY [Concomitant]
  74. PULMICORT [Concomitant]
  75. MOBIC [Concomitant]
  76. KADIAN ^KNOLL^ [Concomitant]
  77. MSIR [Concomitant]
  78. OXYMORPHONE [Concomitant]
  79. CLONIDINE [Concomitant]
  80. ZESTRIL [Concomitant]
  81. LOTENSIN [Concomitant]
  82. PRILOSEC [Concomitant]
  83. THEODUR [Concomitant]
  84. BUSPAR [Concomitant]
  85. REMERON [Concomitant]

REACTIONS (61)
  - Poor dental condition [Unknown]
  - Injury [Unknown]
  - Pain [Unknown]
  - Anxiety [Unknown]
  - Bone pain [Recovering/Resolving]
  - Actinomycosis [Unknown]
  - Bone disorder [Unknown]
  - Decreased interest [Unknown]
  - Headache [Unknown]
  - Candida infection [Recovering/Resolving]
  - Chronic obstructive pulmonary disease [Unknown]
  - Bronchitis [Unknown]
  - Wheezing [Unknown]
  - Pyrexia [Recovering/Resolving]
  - Mucosal inflammation [Recovering/Resolving]
  - Respiratory failure [Unknown]
  - Odynophagia [Unknown]
  - Metastases to meninges [Unknown]
  - Convulsion [Unknown]
  - General physical health deterioration [Unknown]
  - Fracture nonunion [Unknown]
  - Dyspnoea [Unknown]
  - Pulmonary mass [Unknown]
  - Pneumonitis [Unknown]
  - Cerebral atrophy [Unknown]
  - Jaundice [Unknown]
  - Metastases to bone [Unknown]
  - Hyperthyroidism [Unknown]
  - Bone cancer metastatic [Unknown]
  - Hepatic lesion [Unknown]
  - Cardiomegaly [Unknown]
  - Hyperlipidaemia [Unknown]
  - Hypoaesthesia [Unknown]
  - Paraesthesia [Unknown]
  - Mastoiditis [Unknown]
  - Postmenopause [Unknown]
  - Anaemia [Unknown]
  - Local swelling [Unknown]
  - Laryngitis [Unknown]
  - Tremor [Unknown]
  - Malaise [Unknown]
  - Nausea [Unknown]
  - Vomiting [Unknown]
  - Cough [Unknown]
  - Sinusitis [Unknown]
  - Constipation [Unknown]
  - Weight decreased [Unknown]
  - Lung neoplasm malignant [Unknown]
  - Second primary malignancy [Unknown]
  - Ankle fracture [Unknown]
  - Sepsis [Unknown]
  - Tracheobronchitis [Unknown]
  - Metastases to spine [Unknown]
  - Bone marrow oedema [Unknown]
  - Bursitis [Unknown]
  - Left atrial dilatation [Unknown]
  - Aortic stenosis [Unknown]
  - Polyneuropathy [Unknown]
  - Emphysema [Unknown]
  - Osteonecrosis of jaw [Unknown]
  - Osteomyelitis [Unknown]
